FAERS Safety Report 25259649 (Version 1)
Quarter: 2025Q2

REPORT INFORMATION
  Report Type: Spontaneous
  Country: US (occurrence: None)
  Receive Date: 20250430
  Receipt Date: 20250430
  Transmission Date: 20250717
  Serious: No
  Sender: FDA-CTU
  Company Number: None

PATIENT

DRUGS (1)
  1. PRAVASTATIN [Suspect]
     Active Substance: PRAVASTATIN

REACTIONS (6)
  - Pain [None]
  - Muscle spasms [None]
  - Muscle spasms [None]
  - Nausea [None]
  - Fatigue [None]
  - Faeces pale [None]
